FAERS Safety Report 6509051-4 (Version None)
Quarter: 2009Q4

REPORT INFORMATION
  Report Type: 
  Country: None (occurrence: None)
  Receive Date: 20091221
  Receipt Date: 20091210
  Transmission Date: 20100525
  Serious: Yes (Other)
  Sender: FDA-Public Use
  Company Number: GB-GENENTECH-240085

PATIENT
  Sex: Female
  Weight: 57 kg

DRUGS (1)
  1. MABTHERA [Suspect]
     Indication: IDIOPATHIC THROMBOCYTOPENIC PURPURA
     Dosage: 160 MG/M2, 1/WEEK
     Route: 042
     Dates: start: 20070213, end: 20070306

REACTIONS (2)
  - EOSINOPHIL COUNT INCREASED [None]
  - MENINGITIS CRYPTOCOCCAL [None]
